FAERS Safety Report 9530410 (Version 2)
Quarter: 2013Q4

REPORT INFORMATION
  Report Type: Spontaneous
  Country: IL (occurrence: IL)
  Receive Date: 20130918
  Receipt Date: 20131024
  Transmission Date: 20140711
  Serious: Yes (Death, Hospitalization)
  Sender: FDA-Public Use
  Company Number: IL-009507513-1309ISR006936

PATIENT
  Age: 65 Year
  Sex: Male

DRUGS (4)
  1. TEMODAL [Suspect]
     Indication: METASTASES TO LIVER
     Dosage: 200 MG, UNK, FIVE DAYS PER MONTH (PLANNED FOR SIX MONTHS)
  2. TEMODAL [Suspect]
     Indication: NEUROENDOCRINE CARCINOMA METASTATIC
  3. TEMODAL [Suspect]
     Indication: METASTASES TO LUNG
  4. XELODA [Concomitant]

REACTIONS (5)
  - Death [Fatal]
  - Ascites [Unknown]
  - Oedema peripheral [Unknown]
  - Infection [Unknown]
  - Off label use [Unknown]
